FAERS Safety Report 6044086-X (Version None)
Quarter: 2009Q1

REPORT INFORMATION
  Report Type: 
  Country: None (occurrence: None)
  Receive Date: 20090120
  Receipt Date: 20090116
  Transmission Date: 20090719
  Serious: Yes (Other)
  Sender: FDA-Public Use
  Company Number: B0541411A

PATIENT
  Age: 67 Year
  Sex: Male
  Weight: 90 kg

DRUGS (7)
  1. VALTREX [Suspect]
     Indication: HERPES ZOSTER
     Dosage: 500MG PER DAY
     Route: 048
     Dates: start: 20081003, end: 20081006
  2. ALOSITOL [Concomitant]
     Dosage: 50MG PER DAY
     Route: 048
     Dates: start: 20031016
  3. TAKEPRON [Concomitant]
     Indication: GASTRIC ULCER
     Dosage: 15MG PER DAY
     Route: 048
     Dates: start: 20031016
  4. TANKARU [Concomitant]
     Indication: BLOOD PHOSPHORUS INCREASED
     Dosage: 3000MG PER DAY
     Route: 048
     Dates: start: 20031016
  5. ONEALFA [Concomitant]
     Dosage: .5MCG PER DAY
     Route: 048
     Dates: start: 20031016
  6. ADALAT CC [Concomitant]
     Indication: HYPERTENSION
     Dosage: 40MG PER DAY
     Route: 048
     Dates: start: 20031016
  7. OLMETEC [Concomitant]
     Indication: HYPERTENSION
     Dosage: 40MG PER DAY
     Route: 048
     Dates: start: 20070531

REACTIONS (7)
  - DECREASED APPETITE [None]
  - ENCEPHALOPATHY [None]
  - HALLUCINATION [None]
  - INITIAL INSOMNIA [None]
  - NIGHTMARE [None]
  - TOXIC ENCEPHALOPATHY [None]
  - TREMOR [None]
